FAERS Safety Report 10299124 (Version 2)
Quarter: 2014Q3

REPORT INFORMATION
  Report Type: Spontaneous
  Country: US (occurrence: US)
  Receive Date: 20140711
  Receipt Date: 20140711
  Transmission Date: 20150326
  Serious: No
  Sender: FDA-Public Use
  Company Number: US-GILEAD-2013-0083018

PATIENT
  Age: 82 Year
  Sex: Female

DRUGS (1)
  1. LETAIRIS [Suspect]
     Active Substance: AMBRISENTAN
     Indication: PRODUCT USED FOR UNKNOWN INDICATION
     Dosage: 5 MG, UNK
     Route: 048
     Dates: start: 20130712, end: 20130819

REACTIONS (6)
  - Swelling [Recovered/Resolved]
  - Dyspnoea [Recovered/Resolved]
  - Fall [Unknown]
  - Fatigue [Unknown]
  - Laceration [Unknown]
  - Asthenia [Unknown]

NARRATIVE: CASE EVENT DATE: 20130808
